FAERS Safety Report 6915069-X (Version None)
Quarter: 2010Q3

REPORT INFORMATION
  Report Type: 
  Country: None (occurrence: None)
  Receive Date: 20100809
  Receipt Date: 20100526
  Transmission Date: 20110219
  Serious: Yes (Death, Life-Threatening, Other)
  Sender: FDA-Public Use
  Company Number: US-GENZYME-CLOF-1001108

PATIENT
  Age: 3 Year
  Sex: Male

DRUGS (4)
  1. CLOLAR [Suspect]
     Indication: ACUTE LEUKAEMIA
     Route: 042
  2. FLUDARABINE [Suspect]
     Indication: ACUTE MYELOID LEUKAEMIA
     Route: 042
  3. GRANULOCYTE COLONY STIMULATING FACTOR [Suspect]
     Indication: ACUTE MYELOID LEUKAEMIA
     Route: 065
  4. CYTARABINE [Suspect]
     Indication: ACUTE MYELOID LEUKAEMIA
     Route: 065

REACTIONS (7)
  - CAROTID ARTERY OCCLUSION [None]
  - CEREBRAL INFARCTION [None]
  - DECEREBRATION [None]
  - HYPOTENSION [None]
  - MYDRIASIS [None]
  - PERIORBITAL OEDEMA [None]
  - STREPTOCOCCAL BACTERAEMIA [None]
